FAERS Safety Report 23520394 (Version 1)
Quarter: 2024Q1

REPORT INFORMATION
  Report Type: 
  Country: None (occurrence: None)
  Receive Date: 20240214
  Receipt Date: 20240214
  Transmission Date: 20240409
  Serious: No
  Sender: FDA-Public Use
  Company Number: CA-ROCHE-3438099

PATIENT
  Weight: 90 kg

DRUGS (6)
  1. RITUXIMAB [Suspect]
     Active Substance: RITUXIMAB
     Dosage: (799 MG) FOR 5 CYCLES, LAST DOSE OF RITUXIMAB PRIOR TO THE SAE  WAS TAKEN ON 15/AUG/2023
     Dates: start: 20230719
  2. RITUXIMAB [Suspect]
     Active Substance: RITUXIMAB
     Dates: start: 20231107
  3. TAFASITAMAB-CXIX [Suspect]
     Active Substance: TAFASITAMAB-CXIX
     Dosage: 12 CYCLES WEEKLY THE FIRST 3 CYCLES?LAST DOSE OF TAFASITAMAB PRIOR TO THE SAES WAS TAKEN ON 22/AUG/2
     Dates: start: 20230718, end: 20230824
  4. TAFASITAMAB-CXIX [Suspect]
     Active Substance: TAFASITAMAB-CXIX
     Dates: start: 20231107
  5. LENALIDOMIDE [Suspect]
     Active Substance: LENALIDOMIDE
     Dosage: DAYS 1 TO 21 FOR 12 CYCLES?LAST DOSE OF LENALIDOMIDE PRIOR TO THE SAE WAS TAKEN ON 25/AUG/2023
     Dates: start: 20230718
  6. LENALIDOMIDE [Suspect]
     Active Substance: LENALIDOMIDE
     Dates: start: 20231107

REACTIONS (2)
  - Pulmonary sepsis [None]
  - Acute kidney injury [None]

NARRATIVE: CASE EVENT DATE: 20230824
